FAERS Safety Report 5496830-8 (Version None)
Quarter: 2007Q4

REPORT INFORMATION
  Report Type: 
  Country: None (occurrence: None)
  Receive Date: 20071023
  Receipt Date: 20071012
  Transmission Date: 20080405
  Serious: Yes (Hospitalization)
  Sender: FDA-Public Use
  Company Number: 2007-03416

PATIENT
  Age: 29 Year
  Sex: Male
  Weight: 82 kg

DRUGS (7)
  1. VELCADE [Suspect]
     Indication: MULTIPLE MYELOMA
     Dosage: 3.00 MG, INTRVENOUS
     Route: 042
     Dates: start: 20070807, end: 20070921
  2. DOXORUBICIN (DOXORUBICI) INJECTION [Suspect]
     Indication: MULTIPLE MYELOMA
     Dosage: 150.00 MG, INTRAVENOUS
     Route: 042
     Dates: start: 20070807, end: 20070917
  3. CYCLOPHOSPHAMIDE [Suspect]
     Indication: MULTIPLE MYELOMA
     Dosage: 2400.00 MG, INTRAVENOUS
     Route: 042
     Dates: start: 20070807, end: 20070918
  4. VINDESINE (VINDESINE) [Suspect]
     Indication: MULTIPLE MYELOMA
     Dosage: 4.00 MG, INTRAVENOUS
     Route: 042
     Dates: start: 20070807, end: 20070921
  5. BLEOMYCIN [Suspect]
     Indication: MULTIPLE MYELOMA
     Dosage: 10.00 MG, INTRAVENOUS
     Route: 042
     Dates: start: 20070807, end: 20070921
  6. METHOTREXATE [Suspect]
     Indication: MULTIPLE MYELOMA
     Dates: start: 20070807
  7. GRANOCYTE 13-34 (LENOGRASTIM) INJECTION, 150MG/M2 [Suspect]
     Indication: MULTIPLE MYELOMA
     Dosage: 340.00 UG
     Dates: start: 20070922

REACTIONS (2)
  - NEUTROPENIA [None]
  - RESPIRATORY TRACT INFECTION [None]
